FAERS Safety Report 6516797-0 (Version None)
Quarter: 2009Q4

REPORT INFORMATION
  Report Type: 
  Country: None (occurrence: None)
  Receive Date: 20091215
  Receipt Date: 20090326
  Transmission Date: 20100525
  Serious: Yes (Other)
  Sender: FDA-Public Use
  Company Number: 09-000494

PATIENT
  Sex: 0

DRUGS (3)
  1. FEMHRT [Suspect]
     Dates: start: 20020901, end: 20021201
  2. PREMPRO [Suspect]
     Dates: start: 19980101, end: 20020101
  3. PREMARIN [Suspect]
     Dates: start: 19970101, end: 19990101

REACTIONS (1)
  - BREAST CANCER [None]
